FAERS Safety Report 5062318-1 (Version None)
Quarter: 2006Q3

REPORT INFORMATION
  Report Type: 
  Country: None (occurrence: None)
  Receive Date: 20060703
  Receipt Date: 20051208
  Transmission Date: 20061208
  Serious: No
  Sender: FDA-Public Use
  Company Number: 2005S1011842

PATIENT
  Age: 50 Year
  Sex: Male
  Weight: 91.173 kg

DRUGS (6)
  1. CLOZAPINE [Suspect]
     Indication: SCHIZOAFFECTIVE DISORDER
     Dosage: SEE IMAGE
     Route: 048
     Dates: start: 20031101
  2. CLOZAPINE [Suspect]
     Indication: SCHIZOAFFECTIVE DISORDER
     Dosage: SEE IMAGE
     Route: 048
     Dates: start: 20031101
  3. DEPAKOTE [Suspect]
     Dosage: 250 MG;TID;ORAL
     Route: 048
     Dates: end: 20051230
  4. FOLIC ACID [Concomitant]
  5. OLANZAPINE [Concomitant]
  6. LORAZEPAM [Concomitant]

REACTIONS (1)
  - GRANULOCYTOPENIA [None]
